FAERS Safety Report 4664180-5 (Version None)
Quarter: 2005Q2

REPORT INFORMATION
  Report Type: 
  Country: None (occurrence: None)
  Receive Date: 20050516
  Receipt Date: 20050516
  Transmission Date: 20051028
  Serious: Yes (Other)
  Sender: FDA-Public Use
  Company Number: None

PATIENT
  Age: 56 Year
  Sex: Female
  Weight: 63.5036 kg

DRUGS (1)
  1. COMPOUND W FREEZE OFF [Suspect]
     Indication: SKIN PAPILLOMA
     Dosage: 1   1 TOPICAL
     Route: 061
     Dates: start: 20041111, end: 20041111

REACTIONS (1)
  - APPLICATION SITE SCAR [None]
